FAERS Safety Report 16549520 (Version 3)
Quarter: 2019Q3

REPORT INFORMATION
  Report Type: Report from Study
  Country: US (occurrence: US)
  Receive Date: 20190710
  Receipt Date: 20190926
  Transmission Date: 20191004
  Serious: Yes (Hospitalization, Other)
  Sender: FDA-Public Use
  Company Number: US-JNJFOC-20190114279

PATIENT
  Age: 53 Year
  Sex: Female
  Weight: 52 kg

DRUGS (8)
  1. IMBRUVICA [Suspect]
     Active Substance: IBRUTINIB
     Dosage: 420 MG, QD
     Route: 048
     Dates: start: 20190309
  2. IMBRUVICA [Suspect]
     Active Substance: IBRUTINIB
     Dosage: 420 MG, QD
     Route: 048
     Dates: start: 20190405
  3. DUREZOL [Suspect]
     Active Substance: DIFLUPREDNATE
     Indication: EYE INFLAMMATION
     Dosage: UNK
     Route: 065
  4. IRON [Concomitant]
     Active Substance: IRON
  5. IMBRUVICA [Suspect]
     Active Substance: IBRUTINIB
     Indication: CHRONIC LYMPHOCYTIC LEUKAEMIA
     Dosage: 420 MG, QD
     Route: 048
     Dates: start: 20181114
  6. IMBRUVICA [Suspect]
     Active Substance: IBRUTINIB
     Dosage: 420 MG, QD
     Route: 048
     Dates: start: 20181122
  7. IMBRUVICA [Suspect]
     Active Substance: IBRUTINIB
     Dosage: 420 MG, QD
     Route: 048
     Dates: start: 20181115
  8. IMBRUVICA [Suspect]
     Active Substance: IBRUTINIB
     Dosage: 420 MG, QD
     Route: 048
     Dates: start: 20190503, end: 2019

REACTIONS (23)
  - Musculoskeletal stiffness [Unknown]
  - Dry eye [Unknown]
  - Rash papular [Not Recovered/Not Resolved]
  - Cataract [Not Recovered/Not Resolved]
  - Blood iron decreased [Unknown]
  - Arthralgia [Not Recovered/Not Resolved]
  - Rash pruritic [Not Recovered/Not Resolved]
  - White blood cell count abnormal [Not Recovered/Not Resolved]
  - Fatigue [Not Recovered/Not Resolved]
  - Urticaria [Not Recovered/Not Resolved]
  - Joint stiffness [Not Recovered/Not Resolved]
  - Toxicity to various agents [Unknown]
  - Myalgia [Unknown]
  - Peripheral swelling [Unknown]
  - Insomnia [Unknown]
  - Muscular weakness [Not Recovered/Not Resolved]
  - Nervousness [Unknown]
  - Weight increased [Not Recovered/Not Resolved]
  - Stress [Unknown]
  - Gait disturbance [Not Recovered/Not Resolved]
  - Musculoskeletal disorder [Not Recovered/Not Resolved]
  - Contusion [Unknown]
  - Skin haemorrhage [Not Recovered/Not Resolved]

NARRATIVE: CASE EVENT DATE: 201812
